FAERS Safety Report 12862411 (Version 1)
Quarter: 2016Q4

REPORT INFORMATION
  Report Type: Report from Study
  Country: US (occurrence: US)
  Receive Date: 20161019
  Receipt Date: 20161019
  Transmission Date: 20170207
  Serious: Yes (Death)
  Sender: FDA-Public Use
  Company Number: US-PFIZER INC-2016482256

PATIENT

DRUGS (11)
  1. VINCRISTINE SULFATE. [Suspect]
     Active Substance: VINCRISTINE SULFATE
     Indication: BURKITT^S LYMPHOMA
     Dosage: 1.5 MG/M2, CYCLIC (ON DAYS 1 AND 8 DURING CYCLE 1 AND ON DAYS 1, 8, AND 15 DURING CYCLE 2)
  2. CYCLOPHOSPHAMIDE. [Suspect]
     Active Substance: CYCLOPHOSPHAMIDE
     Dosage: 200 MG/M2, CYCLIC (ON DAYS 2-5)
  3. METHOTREXATE SODIUM. [Suspect]
     Active Substance: METHOTREXATE SODIUM
     Indication: BURKITT^S LYMPHOMA
     Dosage: 1200 MG/M2, CYCLIC (OVER 1 HOUR FOLLOWED BY 240 MG/M2/HOUR OVER 23 HOURS)
  4. ETOPOSIDE. [Suspect]
     Active Substance: ETOPOSIDE
     Indication: BURKITT^S LYMPHOMA
     Dosage: 60 MG/M2, CYCLIC (ON DAYS 1-5)
  5. DOXORUBICIN HCL [Suspect]
     Active Substance: DOXORUBICIN HYDROCHLORIDE
     Indication: BURKITT^S LYMPHOMA
     Dosage: 40 MG/M2, CYCLIC (ON DAY 1)
  6. CYTARABINE. [Concomitant]
     Active Substance: CYTARABINE
     Dosage: 2 G/M2 FOR 4 DOSES ON DAYS 1 AND 2 OF IVAC
  7. CYTARABINE. [Suspect]
     Active Substance: CYTARABINE
     Indication: BURKITT^S LYMPHOMA
     Dosage: 2000 MG/M2, CYCLIC (EVERY 12 HOURS ON DAYS 1 AND 2 FOR 4 DOSES)
  8. METHOTREXATE. [Concomitant]
     Active Substance: METHOTREXATE
     Indication: PROPHYLAXIS
     Dosage: 12 MG, CYCLIC (ON DAY 15)
     Route: 037
  9. CYCLOPHOSPHAMIDE. [Suspect]
     Active Substance: CYCLOPHOSPHAMIDE
     Indication: BURKITT^S LYMPHOMA
     Dosage: 800 MG/M2, CYCLIC (ON DAY 1)
  10. IFOSFAMIDE. [Suspect]
     Active Substance: IFOSFAMIDE
     Indication: BURKITT^S LYMPHOMA
     Dosage: 1500 MG/M2, CYCLIC (DAYS 1-5 WITH SODIUM MERCAPTOETHANESULFONATE)
  11. CYTARABINE. [Concomitant]
     Active Substance: CYTARABINE
     Indication: PROPHYLAXIS
     Dosage: 70 MG, CYCLIC (ON DAYS 1 AND 3)
     Route: 037

REACTIONS (1)
  - Toxicity to various agents [Fatal]
